FAERS Safety Report 7234566-3 (Version None)
Quarter: 2011Q1

REPORT INFORMATION
  Report Type: 
  Country: None (occurrence: None)
  Receive Date: 20110120
  Receipt Date: 20110113
  Transmission Date: 20110831
  Serious: Yes (Hospitalization, Other)
  Sender: FDA-Public Use
  Company Number: US-ASTRAZENECA-2008UW07754

PATIENT
  Age: 10523 Day
  Sex: Female
  Weight: 124.3 kg

DRUGS (11)
  1. TOPAMAX [Concomitant]
  2. SEROQUEL [Suspect]
     Indication: HALLUCINATION, AUDITORY
     Dosage: 25 MG PRN , INCREASED TO 100 MG 1 TO 2 AT BEDTIME
     Route: 048
     Dates: start: 20021114
  3. SEROQUEL [Suspect]
     Route: 048
     Dates: start: 20021115, end: 20030801
  4. HYDROXYZINE HCL [Concomitant]
     Dates: start: 20021127
  5. GEODON [Concomitant]
     Dates: start: 20040101, end: 20080101
  6. SEROQUEL [Suspect]
     Indication: BIPOLAR DISORDER
     Dosage: 25 MG PRN , INCREASED TO 100 MG 1 TO 2 AT BEDTIME
     Route: 048
     Dates: start: 20021114
  7. SEROQUEL [Suspect]
     Route: 048
     Dates: start: 20030115, end: 20030801
  8. SEROQUEL [Suspect]
     Route: 048
     Dates: start: 20030115, end: 20030801
  9. TOPAMAX [Concomitant]
     Dosage: 25 MG-200 MG
     Dates: start: 20021114
  10. EFFEXOR XR [Concomitant]
     Dosage: 150 MG-225 MG
     Dates: start: 20021112
  11. SEROQUEL [Suspect]
     Route: 048
     Dates: start: 20021115, end: 20030801

REACTIONS (5)
  - BLOOD CHOLESTEROL INCREASED [None]
  - ARTERIAL DISORDER [None]
  - TYPE 2 DIABETES MELLITUS [None]
  - CATHETERISATION CARDIAC [None]
  - STAPHYLOCOCCAL INFECTION [None]
